FAERS Safety Report 5525286-1 (Version None)
Quarter: 2007Q4

REPORT INFORMATION
  Report Type: 
  Country: None (occurrence: None)
  Receive Date: 20071126
  Receipt Date: 20071112
  Transmission Date: 20080405
  Serious: Yes (Disabling)
  Sender: FDA-Public Use
  Company Number: FR-ROCHE-531221

PATIENT
  Age: 53 Year
  Sex: Male
  Weight: 83 kg

DRUGS (9)
  1. PEG-INTERFERON ALFA 2A (RO 25-8310) [Suspect]
     Indication: HEPATITIS C
     Route: 058
  2. RIBAVIRIN [Suspect]
     Indication: HEPATITIS C
     Route: 048
  3. NEORECORMON [Suspect]
     Indication: DRUG USE FOR UNKNOWN INDICATION
     Route: 058
  4. NOVONORM [Concomitant]
  5. LEVOCARNIL [Concomitant]
     Dates: start: 20070430
  6. ATACAND [Concomitant]
     Dates: start: 20070608
  7. MOTILYO [Concomitant]
     Dates: start: 20070430
  8. RIVOTRIL [Concomitant]
  9. ACETAMINOPHEN [Concomitant]

REACTIONS (1)
  - PARKINSONISM [None]
